FAERS Safety Report 5212211-6 (Version None)
Quarter: 2006Q4

REPORT INFORMATION
  Report Type: 
  Country: None (occurrence: None)
  Receive Date: 20061115
  Receipt Date: 20060717
  Transmission Date: 20070319
  Serious: No
  Sender: FDA-Public Use
  Company Number: 200614056BWH

PATIENT
  Age: 57 Year
  Sex: Male
  Weight: 68.0396 kg

DRUGS (7)
  1. NEXAVAR [Suspect]
     Indication: METASTATIC RENAL CELL CARCINOMA
     Dosage: SEE IMAGE
     Route: 048
     Dates: start: 20060526, end: 20060601
  2. NEXAVAR [Suspect]
     Indication: METASTATIC RENAL CELL CARCINOMA
     Dosage: SEE IMAGE
     Route: 048
     Dates: start: 20060601
  3. . [Concomitant]
  4. ATENOLOL [Concomitant]
  5. HYDROCHLORIDE [Concomitant]
  6. PROZAC [Concomitant]
  7. OXYCODONE HCL [Concomitant]

REACTIONS (11)
  - AGEUSIA [None]
  - BLISTER [None]
  - DECREASED APPETITE [None]
  - DIARRHOEA [None]
  - DYSGEUSIA [None]
  - ERYTHEMA [None]
  - FATIGUE [None]
  - NAUSEA [None]
  - ORAL DISCOMFORT [None]
  - PAIN OF SKIN [None]
  - RASH MACULAR [None]
